FAERS Safety Report 9626856 (Version 1)
Quarter: 2013Q4

REPORT INFORMATION
  Report Type: Spontaneous
  Country: US (occurrence: US)
  Receive Date: 20131016
  Receipt Date: 20131016
  Transmission Date: 20140711
  Serious: No
  Sender: FDA-Public Use
  Company Number: US-BAYER-2013-124870

PATIENT
  Sex: Female

DRUGS (1)
  1. CLIMARA [Suspect]
     Indication: HOT FLUSH
     Dosage: 1 DF, OW
     Route: 062
     Dates: start: 1998, end: 20131002

REACTIONS (2)
  - Drug ineffective [None]
  - Mood swings [Recovered/Resolved]
